FAERS Safety Report 7292787-8 (Version None)
Quarter: 2011Q1

REPORT INFORMATION
  Report Type: 
  Country: None (occurrence: None)
  Receive Date: 20110215
  Receipt Date: 20110204
  Transmission Date: 20110831
  Serious: Yes (Death, Hospitalization)
  Sender: FDA-Public Use
  Company Number: FR-CELGENEUS-056-21880-10090871

PATIENT
  Sex: Male

DRUGS (8)
  1. REVLIMID [Suspect]
     Indication: MULTIPLE MYELOMA
     Route: 048
     Dates: start: 20071214, end: 20100525
  2. REVLIMID [Suspect]
     Route: 048
     Dates: start: 20100701, end: 20100701
  3. REVLIMID [Suspect]
     Route: 048
     Dates: start: 20100601, end: 20100601
  4. GRANOCYTE 34 [Concomitant]
     Route: 065
     Dates: start: 20100701, end: 20100701
  5. NOXAFIL [Concomitant]
     Indication: PROPHYLAXIS
     Route: 065
     Dates: start: 20100901, end: 20100924
  6. DEXAMETHASONE [Concomitant]
     Indication: MULTIPLE MYELOMA
     Route: 065
     Dates: start: 20071212, end: 20100501
  7. CLASTOBAN [Concomitant]
     Route: 065
     Dates: start: 20040301, end: 20100901
  8. GRANOCYTE 34 [Concomitant]
     Route: 065
     Dates: start: 20100601, end: 20100601

REACTIONS (2)
  - PSEUDOMONAL SEPSIS [None]
  - ACUTE LYMPHOCYTIC LEUKAEMIA [None]
